FAERS Safety Report 5931659-5 (Version None)
Quarter: 2008Q4

REPORT INFORMATION
  Report Type: 
  Country: None (occurrence: None)
  Receive Date: 20081023
  Receipt Date: 20060502
  Transmission Date: 20090506
  Serious: Yes (Hospitalization, Other)
  Sender: FDA-Public Use
  Company Number: 2006AL002083

PATIENT
  Age: 71 Year
  Sex: Female

DRUGS (5)
  1. DICLOFENAC SODIUM [Suspect]
     Indication: RHEUMATOID ARTHRITIS
     Dosage: 75 MG;BID;PO
     Route: 048
     Dates: start: 20030611, end: 20031110
  2. LEFLUNOMIDE [Concomitant]
  3. METOPROLOL TARTRATE [Concomitant]
  4. AMLODOPINE BESYLATE [Concomitant]
  5. PLUS BENAZEPRIL [Concomitant]

REACTIONS (2)
  - BLOOD PRESSURE INCREASED [None]
  - SYNCOPE [None]
